FAERS Safety Report 10182968 (Version 1)
Quarter: 2014Q2

REPORT INFORMATION
  Report Type: Spontaneous
  Country: AR (occurrence: AR)
  Receive Date: 20140520
  Receipt Date: 20140520
  Transmission Date: 20141212
  Serious: Yes (Death, Hospitalization, Other)
  Sender: FDA-Public Use
  Company Number: AR-ALEXION PHARMACEUTICALS INC.-A201401850

PATIENT
  Sex: 0

DRUGS (3)
  1. SOLIRIS 300MG [Suspect]
     Indication: PAROXYSMAL NOCTURNAL HAEMOGLOBINURIA
     Dosage: 900 MG, Q2W
     Route: 042
     Dates: start: 201110, end: 20140504
  2. MESALAZINE [Concomitant]
     Indication: COLITIS ULCERATIVE
     Dosage: UNK
     Route: 048
  3. DELTASONE                          /00044701/ [Concomitant]
     Indication: COLITIS ULCERATIVE
     Dosage: UNK
     Route: 048

REACTIONS (7)
  - Metastases to liver [Fatal]
  - Metastases to bone [Fatal]
  - Metastases to lung [Fatal]
  - Anaemia [Unknown]
  - Dyspnoea [Unknown]
  - Respiratory failure [Unknown]
  - Gastrointestinal haemorrhage [Unknown]
